FAERS Safety Report 13936714 (Version 1)
Quarter: 2017Q3

REPORT INFORMATION
  Report Type: Spontaneous
  Country: PT (occurrence: PT)
  Receive Date: 20170905
  Receipt Date: 20170905
  Transmission Date: 20171127
  Serious: Yes (Death, Hospitalization, Other)
  Sender: FDA-Public Use
  Company Number: PT-009507513-1709PRT000397

PATIENT
  Age: 56 Year
  Sex: Female

DRUGS (4)
  1. SIMVASTATIN. [Concomitant]
     Active Substance: SIMVASTATIN
     Route: 048
  2. KEYTRUDA [Suspect]
     Active Substance: PEMBROLIZUMAB
     Indication: LUNG NEOPLASM MALIGNANT
     Dosage: 1 CYCLE
     Dates: start: 20170728
  3. DICYCLOMINE HYDROCHLORIDE (+) DOXYLAMINE SUCCINATE (+) PYRIDOXINE HYDR [Concomitant]
  4. ALPRAZOLAM. [Concomitant]
     Active Substance: ALPRAZOLAM

REACTIONS (4)
  - Rhabdomyolysis [Unknown]
  - Respiratory failure [Fatal]
  - Hepatitis [Unknown]
  - Atrioventricular block complete [Fatal]

NARRATIVE: CASE EVENT DATE: 2017
